FAERS Safety Report 20337616 (Version 1)
Quarter: 2022Q1

REPORT INFORMATION
  Report Type: Spontaneous
  Country: US (occurrence: US)
  Receive Date: 20220114
  Receipt Date: 20220114
  Transmission Date: 20220423
  Serious: No
  Sender: FDA-Public Use
  Company Number: US-SA-SAC20220111000070

PATIENT
  Age: 58 Year
  Sex: Female

DRUGS (27)
  1. DUPIXENT [Suspect]
     Active Substance: DUPILUMAB
     Indication: Asthma
     Dosage: 300 MG, QOW
     Route: 058
  2. CUVITRU [Concomitant]
     Active Substance: HUMAN IMMUNOGLOBULIN G
  3. EPINEPHRINE [Concomitant]
     Active Substance: EPINEPHRINE
  4. ACETAMINOPHEN [Concomitant]
     Active Substance: ACETAMINOPHEN
  5. DIPHENHYDRAMINE [Concomitant]
     Active Substance: DIPHENHYDRAMINE
  6. HYDROCORTISONE [Concomitant]
     Active Substance: HYDROCORTISONE
  7. FLUTICASONE PROPIONATE [Concomitant]
     Active Substance: FLUTICASONE PROPIONATE
  8. ALBUTEROL SULFATE [Concomitant]
     Active Substance: ALBUTEROL SULFATE
  9. LIDOCAINE [Concomitant]
     Active Substance: LIDOCAINE
  10. HIZENTRA [Concomitant]
     Active Substance: HUMAN IMMUNOGLOBULIN G
  11. NUCALA [Concomitant]
     Active Substance: MEPOLIZUMAB
  12. ZANTAC [Concomitant]
     Active Substance: RANITIDINE HYDROCHLORIDE
  13. VITAMIN D2 [Concomitant]
     Active Substance: ERGOCALCIFEROL
  14. LINZESS [Concomitant]
     Active Substance: LINACLOTIDE
  15. TIROSINT [Concomitant]
     Active Substance: LEVOTHYROXINE SODIUM
  16. EPIPEN [Concomitant]
     Active Substance: EPINEPHRINE
  17. NEXIUM I.V. [Concomitant]
     Active Substance: ESOMEPRAZOLE SODIUM
  18. COSENTYX [Concomitant]
     Active Substance: SECUKINUMAB
  19. BREO ELLIPTA [Concomitant]
     Active Substance: FLUTICASONE FUROATE\VILANTEROL TRIFENATATE
  20. ZITHROMAX [Concomitant]
     Active Substance: AZITHROMYCIN DIHYDRATE
  21. ZYRTEC [Concomitant]
     Active Substance: CETIRIZINE HYDROCHLORIDE
  22. SINGULAIR [Concomitant]
     Active Substance: MONTELUKAST SODIUM
  23. VITAMIN B12 [Concomitant]
     Active Substance: CYANOCOBALAMIN
  24. LEVOTHYROXINE SODIUM [Concomitant]
     Active Substance: LEVOTHYROXINE SODIUM
  25. LMX [AMOXICILLIN TRIHYDRATE;BACILLUS COAGULANS] [Concomitant]
  26. MAGNESIUM [Concomitant]
     Active Substance: MAGNESIUM
  27. VITAMIN D2 [Concomitant]
     Active Substance: ERGOCALCIFEROL

REACTIONS (1)
  - COVID-19 [Unknown]

NARRATIVE: CASE EVENT DATE: 20211201
